FAERS Safety Report 5016003-2 (Version None)
Quarter: 2006Q2

REPORT INFORMATION
  Report Type: 
  Country: None (occurrence: None)
  Receive Date: 20060531
  Receipt Date: 20060531
  Transmission Date: 20061013
  Serious: Yes (Hospitalization)
  Sender: FDA-Public Use
  Company Number: None

PATIENT
  Age: 72 Year
  Sex: Male
  Weight: 88.4514 kg

DRUGS (13)
  1. REMICADE [Suspect]
     Indication: RHEUMATOID ARTHRITIS
     Dosage: 7MG/KILO  EVERY 5 WEEKS IV DRIP
     Route: 041
     Dates: start: 20010717, end: 20051017
  2. PLAVIX [Concomitant]
  3. FOSAMAX [Concomitant]
  4. PREDNISONE [Concomitant]
  5. TOPROL-XL [Concomitant]
  6. ACIPHEX [Concomitant]
  7. ASPIRIN [Concomitant]
  8. IMDUR [Concomitant]
  9. HYDROCHLOROTHIAZIDE [Concomitant]
  10. MONOPRIL [Concomitant]
  11. METHOTREXATE [Concomitant]
  12. FOLIC ACID [Concomitant]
  13. DARVOCET [Concomitant]

REACTIONS (2)
  - BLOOD CULTURE POSITIVE [None]
  - CRYPTOCOCCOSIS [None]
